FAERS Safety Report 5648704-7 (Version None)
Quarter: 2008Q1

REPORT INFORMATION
  Report Type: 
  Country: None (occurrence: None)
  Receive Date: 20080304
  Receipt Date: 20080221
  Transmission Date: 20080703
  Serious: Yes (Hospitalization)
  Sender: FDA-Public Use
  Company Number: US-AMGEN-QUU261465

PATIENT
  Sex: Female
  Weight: 71.3 kg

DRUGS (12)
  1. ENBREL [Suspect]
     Indication: RHEUMATOID ARTHRITIS
     Route: 058
     Dates: start: 20040615
  2. QUININE SULFATE [Concomitant]
  3. TRANXENE [Concomitant]
  4. ZYDONE [Concomitant]
  5. CALTRATE 600 [Concomitant]
     Route: 048
  6. VITAMIN D [Concomitant]
  7. RELAFEN [Concomitant]
  8. ALBUTEROL [Concomitant]
     Route: 055
  9. MENTAX [Concomitant]
     Route: 048
  10. PROTONIX [Concomitant]
  11. AMBIEN [Concomitant]
  12. LISINOPRIL [Concomitant]

REACTIONS (9)
  - ASPARTATE AMINOTRANSFERASE INCREASED [None]
  - BLOOD ALKALINE PHOSPHATASE INCREASED [None]
  - CANDIDIASIS [None]
  - DEHYDRATION [None]
  - DIARRHOEA [None]
  - FOOT FRACTURE [None]
  - PNEUMONIA LEGIONELLA [None]
  - RENAL FAILURE [None]
  - VOMITING [None]
